FAERS Safety Report 9228742 (Version 2)
Quarter: 2013Q3

REPORT INFORMATION
  Report Type: Report from Study
  Country: DE (occurrence: DE)
  Receive Date: 20130412
  Receipt Date: 20130801
  Transmission Date: 20140515
  Serious: Yes (Hospitalization)
  Sender: FDA-Public Use
  Company Number: DE-ABBOTT-13P-062-1074664-00

PATIENT
  Sex: Male

DRUGS (1)
  1. HUMIRA [Suspect]
     Indication: PSORIATIC ARTHROPATHY
     Dosage: MORE THAN 2 WEEKS
     Route: 058
     Dates: start: 20120928, end: 201307

REACTIONS (2)
  - Anaphylactic shock [Recovering/Resolving]
  - Pruritus [Recovering/Resolving]
